FAERS Safety Report 24563064 (Version 1)
Quarter: 2024Q4

REPORT INFORMATION
  Report Type: Spontaneous
  Country: FR (occurrence: FR)
  Receive Date: 20241030
  Receipt Date: 20241030
  Transmission Date: 20250114
  Serious: Yes (Hospitalization)
  Sender: PFIZER
  Company Number: None

PATIENT
  Age: 61 Year
  Sex: Female
  Weight: 50 kg

DRUGS (11)
  1. XELJANZ [Suspect]
     Active Substance: TOFACITINIB CITRATE
     Indication: Ankylosing spondylitis
     Dosage: 20 MG, DAILY (10-0-10 MG)
     Route: 048
     Dates: start: 202006, end: 20201220
  2. XELJANZ [Suspect]
     Active Substance: TOFACITINIB CITRATE
     Dosage: 10 MG, DAILY (5-0-5 MG)
     Route: 048
     Dates: start: 20210105, end: 20210113
  3. XELJANZ [Suspect]
     Active Substance: TOFACITINIB CITRATE
     Dosage: 20 MG, DAILY (10-0-10 MG)
     Route: 048
     Dates: start: 20210113, end: 20210224
  4. XELJANZ [Suspect]
     Active Substance: TOFACITINIB CITRATE
     Dosage: 15 MG, DAILY (5-0-10 MG)
     Route: 048
     Dates: start: 20210224, end: 202103
  5. XELJANZ [Suspect]
     Active Substance: TOFACITINIB CITRATE
     Dosage: 10 MG, DAILY (5-0-5 MG)
     Route: 048
     Dates: start: 202103, end: 20210923
  6. XELJANZ [Suspect]
     Active Substance: TOFACITINIB CITRATE
     Dosage: 15 MG, DAILY (5-0-10 MG)
     Route: 048
     Dates: start: 20210923, end: 202204
  7. XELJANZ [Suspect]
     Active Substance: TOFACITINIB CITRATE
     Dosage: 10 MG, DAILY (5-0-5 MG)
     Route: 048
     Dates: start: 202204, end: 2023
  8. XELJANZ [Suspect]
     Active Substance: TOFACITINIB CITRATE
     Dosage: 15 MG, DAILY (5-0-10 MG)
     Route: 048
     Dates: start: 2023, end: 2024
  9. XELJANZ [Suspect]
     Active Substance: TOFACITINIB CITRATE
     Dosage: 10 MG, DAILY (5-0-5 MG)
     Route: 048
     Dates: start: 2024
  10. ZOLEDRONIC ACID [Concomitant]
     Active Substance: ZOLEDRONIC ACID
     Dosage: 5 MG
     Route: 042
  11. ACETAMINOPHEN\CODEINE PHOSPHATE [Concomitant]
     Active Substance: ACETAMINOPHEN\CODEINE PHOSPHATE

REACTIONS (1)
  - Bullous haemorrhagic dermatosis [Not Recovered/Not Resolved]

NARRATIVE: CASE EVENT DATE: 20200101
